FAERS Safety Report 20230853 (Version 1)
Quarter: 2021Q4

REPORT INFORMATION
  Report Type: Spontaneous
  Country: US (occurrence: None)
  Receive Date: 20211227
  Receipt Date: 20211227
  Transmission Date: 20220303
  Serious: No
  Sender: FDA-Public Use
  Company Number: 2021A864454

PATIENT
  Sex: Male
  Weight: 86.2 kg

DRUGS (4)
  1. SYMBICORT [Suspect]
     Active Substance: BUDESONIDE\FORMOTEROL FUMARATE DIHYDRATE
     Indication: Chronic obstructive pulmonary disease
     Dosage: SYMBICORT 160/4.5 MCG TWO RESPIRATORY INHALATIONS TWO TIMES A DAY
     Route: 055
  2. BUDESONIDE\FORMOTEROL\GLYCOPYRRONIUM [Suspect]
     Active Substance: BUDESONIDE\FORMOTEROL\GLYCOPYRRONIUM
     Indication: Chronic obstructive pulmonary disease
     Dosage: 160/9/4.8 MCG TWO RESPIRATORY INHALATIONS TWO TIMES A DAY
     Route: 055
  3. SPIRVA [Concomitant]
  4. SPIRVA [Concomitant]
     Dosage: ONE PUFF ONCE A DAY

REACTIONS (5)
  - Obstructive airways disorder [Unknown]
  - Muscle spasms [Recovered/Resolved]
  - Wrong technique in device usage process [Unknown]
  - Intentional device misuse [Not Recovered/Not Resolved]
  - Device use confusion [Unknown]
